FAERS Safety Report 13957340 (Version 1)
Quarter: 2017Q3

REPORT INFORMATION
  Report Type: Not Available
  Country: None (occurrence: US)
  Receive Date: 20170911
  Receipt Date: 20170911
  Transmission Date: 20171128
  Serious: No
  Sender: FDA-Public Use
  Company Number: US-AKORN-65491

PATIENT
  Age: 67 Year
  Sex: Male

DRUGS (1)
  1. ZIOPTAN [Suspect]
     Active Substance: TAFLUPROST

REACTIONS (3)
  - Dizziness [Recovered/Resolved]
  - Stitch abscess [Recovered/Resolved]
  - Fall [Recovered/Resolved]
